FAERS Safety Report 15015687 (Version 1)
Quarter: 2018Q2

REPORT INFORMATION
  Report Type: Spontaneous
  Country: US (occurrence: US)
  Receive Date: 20180615
  Receipt Date: 20180615
  Transmission Date: 20180711
  Serious: Yes (Other)
  Sender: FDA-Public Use
  Company Number: US-SA-2018SA099990

PATIENT
  Age: 41 Year
  Sex: Female
  Weight: 64.85 kg

DRUGS (2)
  1. TAXOTERE [Suspect]
     Active Substance: DOCETAXEL
     Indication: BREAST CANCER FEMALE
     Dosage: 57 MG,Q3W
     Route: 042
     Dates: start: 20110608, end: 20110608
  2. TAXOTERE [Suspect]
     Active Substance: DOCETAXEL
     Dosage: 57 MG,Q3W
     Route: 042
     Dates: start: 20111207, end: 20111207

REACTIONS (1)
  - Alopecia [Recovering/Resolving]

NARRATIVE: CASE EVENT DATE: 20110701
